FAERS Safety Report 10185693 (Version 1)
Quarter: 2014Q2

REPORT INFORMATION
  Report Type: Spontaneous
  Country: US (occurrence: None)
  Receive Date: 20140520
  Receipt Date: 20140520
  Transmission Date: 20141212
  Serious: No
  Sender: FDA-Public Use
  Company Number: None

PATIENT
  Age: 19 Year
  Sex: Male
  Weight: 61.24 kg

DRUGS (1)
  1. METHYLPHENIDATE ER HCL [Suspect]
     Indication: ATTENTION DEFICIT/HYPERACTIVITY DISORDER
     Dosage: 2 PILLS QD ORAL
     Route: 048
     Dates: start: 20130524, end: 20130524

REACTIONS (6)
  - Product substitution issue [None]
  - Drug ineffective [None]
  - Irritability [None]
  - Anxiety [None]
  - Paranoia [None]
  - Insomnia [None]
